FAERS Safety Report 4818547-2 (Version None)
Quarter: 2005Q4

REPORT INFORMATION
  Report Type: 
  Country: None (occurrence: None)
  Receive Date: 20051031
  Receipt Date: 20051017
  Transmission Date: 20060501
  Serious: Yes (Hospitalization, Other)
  Sender: FDA-Public Use
  Company Number: 2005133873

PATIENT
  Sex: Female
  Weight: 57.6068 kg

DRUGS (11)
  1. DETROL LA [Suspect]
     Indication: HYPERTONIC BLADDER
     Dosage: 4 MG (4 MG, 1 IN 1 D), ORAL
     Route: 048
     Dates: start: 20031001, end: 20050328
  2. DETROL LA [Suspect]
     Indication: POLLAKIURIA
     Dosage: 4 MG (4 MG, 1 IN 1 D), ORAL
     Route: 048
     Dates: start: 20031001, end: 20050328
  3. ENALAPRIL MALEATE [Concomitant]
  4. EVISTA [Concomitant]
  5. CALCIUM (CALCIUM) [Concomitant]
  6. HYDROCHLOROTHIAZIDE [Concomitant]
  7. LISINOPRIL [Concomitant]
  8. ZELNORM [Concomitant]
  9. CALCIUM WITH VITAMIN D (CALCIUM PHOSPHATE, CALCIUM SODIUM LACTATE, ERG [Concomitant]
  10. MULTIVITAMIN [Concomitant]
  11. GLUCOSAMINE (GLUCOSAMINE) [Concomitant]

REACTIONS (11)
  - ABDOMINAL RIGIDITY [None]
  - CONSTIPATION [None]
  - DEHYDRATION [None]
  - FAECALOMA [None]
  - FLATULENCE [None]
  - HERNIA REPAIR [None]
  - HYPERTENSION [None]
  - OSTEOPENIA [None]
  - URINARY INCONTINENCE [None]
  - VOMITING [None]
  - X-RAY GASTROINTESTINAL TRACT ABNORMAL [None]
